FAERS Safety Report 23379881 (Version 1)
Quarter: 2024Q1

REPORT INFORMATION
  Report Type: Spontaneous
  Country: PT (occurrence: PT)
  Receive Date: 20240108
  Receipt Date: 20240108
  Transmission Date: 20240409
  Serious: Yes (Death, Hospitalization, Other)
  Sender: FDA-Public Use
  Company Number: PT-BAXTER-2024BAX009930

PATIENT
  Age: 69 Year
  Sex: Female

DRUGS (15)
  1. EXTRANEAL [Suspect]
     Active Substance: CALCIUM CHLORIDE\ICODEXTRIN\MAGNESIUM CHLORIDE\SODIUM CHLORIDE\SODIUM LACTATE
     Indication: Peritoneal dialysis
     Dosage: 1 BAG OF 2L
     Route: 033
  2. CALCIUM CL\DEXTROSE\MAGNESIUM CL\SODIUM BICAR\SODIUM CL\SODIUM LACT [Suspect]
     Active Substance: CALCIUM CHLORIDE\DEXTROSE MONOHYDRATE\MAGNESIUM CHLORIDE\SODIUM BICARBONATE\SODIUM CHLORIDE\SODIUM L
     Indication: Peritoneal dialysis
     Dosage: 3 BAGS OF 5L
     Route: 033
  3. ASPIRIN [Concomitant]
     Active Substance: ASPIRIN
     Dosage: 100MG, 1 TABLET A DAY
     Route: 065
  4. Dagravit [Concomitant]
     Dosage: 1 TABLET A DAY
     Route: 065
  5. FERROUS SULFATE [Concomitant]
     Active Substance: FERROUS SULFATE
     Dosage: 1 TABLET A DAY
     Route: 065
  6. PANTOPRAZOLE [Concomitant]
     Active Substance: PANTOPRAZOLE
     Dosage: 20 MG TAKEN IN FAST
     Route: 065
  7. PENTOXIFYLLINE [Concomitant]
     Active Substance: PENTOXIFYLLINE
     Dosage: 1 TABLET, 3 TIMES PER DAY
     Route: 065
  8. PREDNISOLONE [Concomitant]
     Active Substance: PREDNISOLONE
     Dosage: 2.5MG EVERY OTHER DAY
     Route: 065
  9. ERYTHROPOIETIN [Concomitant]
     Active Substance: ERYTHROPOIETIN
     Dosage: 10/10 DAYS
     Route: 065
  10. CINACALCET HYDROCHLORIDE [Concomitant]
     Active Substance: CINACALCET HYDROCHLORIDE
     Dosage: 1 TABLET TWO TIMES PER DAY
     Route: 065
  11. ROCALTROL [Concomitant]
     Active Substance: CALCITRIOL
     Dosage: 2 TABLETS DAY
     Route: 065
  12. FOLIC ACID [Concomitant]
     Active Substance: FOLIC ACID
     Dosage: 1 TABLET DAY
     Route: 065
  13. ATORVASTATIN [Concomitant]
     Active Substance: ATORVASTATIN
     Dosage: 40 MG, 1 TABLET DAY
     Route: 065
  14. BISOPROLOL [Concomitant]
     Active Substance: BISOPROLOL\BISOPROLOL FUMARATE
     Dosage: 2.5MG HALF TABLET DAY
     Route: 065
  15. RENAGEL [Concomitant]
     Active Substance: SEVELAMER HYDROCHLORIDE
     Dosage: 800MG 2 TABLETS 3 TIMES PER DAY
     Route: 065

REACTIONS (11)
  - Death [Fatal]
  - Acute myocardial infarction [Unknown]
  - Cardiogenic shock [Unknown]
  - Pallor [Unknown]
  - Hypotension [Unknown]
  - Cardio-respiratory arrest [Unknown]
  - Cardiac arrest [Unknown]
  - Intestinal ischaemia [Unknown]
  - Cerebral ischaemia [Unknown]
  - Central nervous system lesion [Unknown]
  - Chest pain [Unknown]

NARRATIVE: CASE EVENT DATE: 20231207
